FAERS Safety Report 12172636 (Version 1)
Quarter: 2016Q1

REPORT INFORMATION
  Report Type: Spontaneous
  Country: FR (occurrence: FR)
  Receive Date: 20160311
  Receipt Date: 20160311
  Transmission Date: 20160526
  Serious: Yes (Other)
  Sender: FDA-Public Use
  Company Number: PHHY2016FR021699

PATIENT
  Age: 54 Year
  Sex: Male
  Weight: 89 kg

DRUGS (1)
  1. EXFORGE [Suspect]
     Active Substance: AMLODIPINE BESYLATE\VALSARTAN
     Indication: HYPERTENSION
     Dosage: 1 DF, QD  (160 MG VALSARTAN AND 5 MG AMLODIPINE)
     Route: 048
     Dates: start: 20151229, end: 20160123

REACTIONS (5)
  - Weight increased [Unknown]
  - Paraesthesia [Unknown]
  - Face oedema [Unknown]
  - Oedema peripheral [Recovering/Resolving]
  - Flushing [Recovered/Resolved]

NARRATIVE: CASE EVENT DATE: 201601
